FAERS Safety Report 12580170 (Version 2)
Quarter: 2016Q3

REPORT INFORMATION
  Report Type: Spontaneous
  Country: TR (occurrence: TR)
  Receive Date: 20160721
  Receipt Date: 20160803
  Transmission Date: 20161109
  Serious: Yes (Death, Hospitalization)
  Sender: FDA-Public Use
  Company Number: TR-CELGENEUS-TUR-2016071868

PATIENT
  Age: 51 Year
  Sex: Male

DRUGS (3)
  1. IMNOVID [Suspect]
     Active Substance: POMALIDOMIDE
     Indication: PLASMA CELL MYELOMA
     Route: 048
     Dates: start: 20160505, end: 20160526
  2. IMNOVID [Suspect]
     Active Substance: POMALIDOMIDE
     Route: 048
     Dates: start: 20160505, end: 20160526
  3. FILGRASTIM [Concomitant]
     Active Substance: FILGRASTIM
     Indication: NEUTROPENIA
     Dosage: 30 MU
     Route: 065
     Dates: start: 20160415, end: 20160602

REACTIONS (3)
  - Sepsis [Fatal]
  - Pneumonia [Fatal]
  - Pleural effusion [Unknown]

NARRATIVE: CASE EVENT DATE: 20160531
